FAERS Safety Report 5596871-6 (Version None)
Quarter: 2008Q1

REPORT INFORMATION
  Report Type: 
  Country: None (occurrence: None)
  Receive Date: 20080119
  Receipt Date: 20080109
  Transmission Date: 20080703
  Serious: Yes (Hospitalization)
  Sender: FDA-Public Use
  Company Number: FR-PFIZER INC-2008004830

PATIENT
  Age: 56 Year
  Sex: Male
  Weight: 85 kg

DRUGS (1)
  1. CHANTIX [Suspect]
     Route: 048
     Dates: start: 20070328, end: 20070410

REACTIONS (3)
  - GASTROINTESTINAL HAEMORRHAGE [None]
  - MELAENA [None]
  - RECTAL HAEMORRHAGE [None]
